FAERS Safety Report 5367025-3 (Version None)
Quarter: 2007Q2

REPORT INFORMATION
  Report Type: 
  Country: None (occurrence: None)
  Receive Date: 20070622
  Receipt Date: 20070618
  Transmission Date: 20071010
  Serious: Yes (Life-Threatening, Hospitalization, Other)
  Sender: FDA-Public Use
  Company Number: A0652676A

PATIENT
  Age: 29 Year
  Sex: Female

DRUGS (3)
  1. PARNATE [Suspect]
     Indication: DEPRESSION
     Dosage: 30MG PER DAY
     Route: 048
     Dates: start: 20070201, end: 20070521
  2. RELACORE [Suspect]
     Route: 048
     Dates: start: 20070521
  3. OCTOPAMINE [Suspect]
     Route: 048

REACTIONS (14)
  - ASTHENIA [None]
  - CEREBRAL HAEMORRHAGE [None]
  - DIAPHRAGMATIC DISORDER [None]
  - DRUG INTERACTION [None]
  - HEADACHE [None]
  - HYPERHIDROSIS [None]
  - HYPERREFLEXIA [None]
  - HYPERTENSIVE CRISIS [None]
  - LABILE HYPERTENSION [None]
  - LETHARGY [None]
  - NAUSEA [None]
  - NEUROLOGICAL SYMPTOM [None]
  - SEROTONIN SYNDROME [None]
  - VOMITING [None]
